FAERS Safety Report 6715726-4 (Version None)
Quarter: 2010Q2

REPORT INFORMATION
  Report Type: 
  Country: None (occurrence: None)
  Receive Date: 20100507
  Receipt Date: 20100428
  Transmission Date: 20101027
  Serious: Yes (Hospitalization, Other)
  Sender: FDA-Public Use
  Company Number: AR-JNJFOC-20091206025

PATIENT
  Sex: Female
  Weight: 70.6 kg

DRUGS (13)
  1. GOLIMUMAB [Suspect]
     Indication: RHEUMATOID ARTHRITIS
     Route: 058
  2. GOLIMUMAB [Suspect]
     Route: 058
  3. PLACEBO [Suspect]
     Indication: RHEUMATOID ARTHRITIS
     Route: 058
  4. METHOTREXATE [Suspect]
     Indication: RHEUMATOID ARTHRITIS
     Route: 048
  5. RANITIDINA [Concomitant]
     Route: 048
  6. CLONAZEPAM [Concomitant]
     Route: 048
  7. EYE DROPS NOS [Concomitant]
     Route: 047
  8. DICLOFENAC [Concomitant]
     Route: 048
  9. ACIFOL [Concomitant]
     Route: 048
  10. GINSENG [Concomitant]
     Route: 048
  11. VITAMIN C [Concomitant]
     Route: 048
  12. METHOTREXATE [Concomitant]
     Route: 048
  13. PANTAS [Concomitant]
     Route: 048

REACTIONS (1)
  - BREAST CANCER [None]
